FAERS Safety Report 11432673 (Version 2)
Quarter: 2015Q3

REPORT INFORMATION
  Report Type: Spontaneous
  Country: BR (occurrence: BR)
  Receive Date: 20150828
  Receipt Date: 20150918
  Transmission Date: 20151125
  Serious: Yes (Hospitalization, Other)
  Sender: FDA-Public Use
  Company Number: PHHY2015BR072943

PATIENT
  Sex: Female
  Weight: 55 kg

DRUGS (1)
  1. DESOGESTREL SANDOZ [Suspect]
     Active Substance: DESOGESTREL
     Indication: HAEMORRHAGE
     Dosage: 1 DF, QD
     Route: 048
     Dates: start: 201505

REACTIONS (5)
  - Leiomyoma [Not Recovered/Not Resolved]
  - Haemorrhage [Recovered/Resolved]
  - Anaemia [Recovering/Resolving]
  - Off label use [Recovered/Resolved]
  - Menstrual disorder [Recovered/Resolved]
